FAERS Safety Report 22908041 (Version 3)
Quarter: 2023Q4

REPORT INFORMATION
  Report Type: Spontaneous
  Country: LV (occurrence: LV)
  Receive Date: 20230905
  Receipt Date: 20231125
  Transmission Date: 20240110
  Serious: Yes (Death, Other)
  Sender: FDA-Public Use
  Company Number: LV-BAYER-2023A120261

PATIENT
  Age: 76 Year
  Sex: Male

DRUGS (1)
  1. XOFIGO [Suspect]
     Active Substance: RADIUM RA-223 DICHLORIDE
     Indication: Prostate cancer
     Dosage: UNK
     Dates: start: 20230803, end: 20230803

REACTIONS (8)
  - Prostate cancer [Fatal]
  - Renal failure [None]
  - Pancytopenia [None]
  - Inflammatory marker increased [None]
  - Body temperature increased [None]
  - Electrolyte imbalance [None]
  - Infection [None]
  - Pain [None]

NARRATIVE: CASE EVENT DATE: 20230814
